FAERS Safety Report 11656065 (Version 1)
Quarter: 2015Q4

REPORT INFORMATION
  Report Type: Spontaneous
  Country: US (occurrence: US)
  Receive Date: 20151023
  Receipt Date: 20151023
  Transmission Date: 20160304
  Serious: No
  Sender: FDA-Public Use
  Company Number: US-HORIZON-ACT-0174-2015

PATIENT
  Age: 31 Year
  Sex: Male

DRUGS (1)
  1. ACTIMMUNE [Suspect]
     Active Substance: INTERFERON GAMMA-1B
     Indication: TUBERCULOMA OF CENTRAL NERVOUS SYSTEM
     Dosage: 0.46 ML THREE TIMES PER WEEK

REACTIONS (2)
  - Drug dose omission [Unknown]
  - Off label use [Unknown]
